FAERS Safety Report 8740885 (Version 3)
Quarter: 2014Q3

REPORT INFORMATION
  Report Type: Report from Study
  Country: US (occurrence: US)
  Receive Date: 20120823
  Receipt Date: 20140904
  Transmission Date: 20150326
  Serious: Yes (Other)
  Sender: FDA-Public Use
  Company Number: US-009507513-1208USA007753

PATIENT
  Age: 70 Year
  Sex: Female

DRUGS (13)
  1. DORZOLAMIDE HYDROCHLORIDE. [Concomitant]
     Active Substance: DORZOLAMIDE HYDROCHLORIDE
  2. ASPIRIN. [Concomitant]
     Active Substance: ASPIRIN
  3. DE-117 [Suspect]
     Active Substance: INVESTIGATIONAL PRODUCT
     Indication: OCULAR HYPERTENSION
     Dosage: 1 GTT, QD
     Route: 047
     Dates: start: 20120801, end: 20120802
  4. INSULIN [Concomitant]
     Active Substance: INSULIN NOS
  5. OMEPRAZOLE. [Concomitant]
     Active Substance: OMEPRAZOLE
  6. AMLODIPINE [Concomitant]
     Active Substance: AMLODIPINE BESYLATE
  7. ACETAMINOPHEN. [Concomitant]
     Active Substance: ACETAMINOPHEN
  8. LISINOPRIL. [Concomitant]
     Active Substance: LISINOPRIL
  9. ATENOLOL. [Concomitant]
     Active Substance: ATENOLOL
  10. PIOGLITAZONE HYDROCHLORIDE. [Concomitant]
     Active Substance: PIOGLITAZONE HYDROCHLORIDE
  11. TAFLUPROST [Suspect]
     Active Substance: TAFLUPROST
     Indication: OCULAR HYPERTENSION
     Dosage: 1 GTT, QD, CONCENTRATION 0.0015%UD EYE DROPS
     Route: 047
     Dates: start: 20120801, end: 20120802
  12. ISOSORBIDE [Concomitant]
     Active Substance: ISOSORBIDE
  13. ATORVASTATIN [Concomitant]
     Active Substance: ATORVASTATIN

REACTIONS (3)
  - Anterior chamber cell [Recovered/Resolved]
  - Conjunctival hyperaemia [None]
  - Photophobia [None]

NARRATIVE: CASE EVENT DATE: 20120803
